FAERS Safety Report 21860235 (Version 1)
Quarter: 2023Q1

REPORT INFORMATION
  Report Type: Spontaneous
  Country: US (occurrence: US)
  Receive Date: 20230113
  Receipt Date: 20230113
  Transmission Date: 20230418
  Serious: Yes (Hospitalization)
  Sender: FDA-Public Use
  Company Number: US-Fresenius Medical Care Renal Therapies Group-FMC-2301-000025

PATIENT
  Age: 50 Year
  Sex: Male

DRUGS (1)
  1. DELFLEX [Suspect]
     Active Substance: CALCIUM CHLORIDE\DEXTROSE\MAGNESIUM CHLORIDE\SODIUM CHLORIDE\SODIUM LACTATE
     Indication: End stage renal disease
     Dosage: FILLS = 4; FILL VOLUME = 2200 ML; LAST FILL VOLUME = 0ML; TOTAL VOLUME = 8800 ML
     Route: 033

REACTIONS (3)
  - Peritonitis bacterial [Unknown]
  - Complication associated with device [Unknown]
  - Fluid retention [Unknown]

NARRATIVE: CASE EVENT DATE: 20221221
